FAERS Safety Report 11951625 (Version 1)
Quarter: 2016Q1

REPORT INFORMATION
  Report Type: Spontaneous
  Country: US (occurrence: US)
  Receive Date: 20160126
  Receipt Date: 20160126
  Transmission Date: 20160526
  Serious: No
  Sender: FDA-Public Use
  Company Number: US-DEXPHARM-20152012

PATIENT
  Age: 59 Year
  Sex: Female
  Weight: 53.51 kg

DRUGS (8)
  1. CLONIDINE. [Concomitant]
     Active Substance: CLONIDINE
  2. BUTRANS [Concomitant]
     Active Substance: BUPRENORPHINE
  3. VITAMIN C [Concomitant]
     Active Substance: ASCORBIC ACID
  4. ZOFRAN [Concomitant]
     Active Substance: ONDANSETRON HYDROCHLORIDE
  5. OMEPRAZOLE DELAYED RELEASE [Suspect]
     Active Substance: OMEPRAZOLE
     Indication: DYSPEPSIA
     Route: 048
     Dates: start: 20150805, end: 20150806
  6. LYRICA [Concomitant]
     Active Substance: PREGABALIN
  7. TRAMADOL. [Concomitant]
     Active Substance: TRAMADOL
  8. LIDODERM [Concomitant]
     Active Substance: LIDOCAINE

REACTIONS (1)
  - Rash [Recovered/Resolved]

NARRATIVE: CASE EVENT DATE: 20150807
